FAERS Safety Report 5813713-1 (Version None)
Quarter: 2008Q3

REPORT INFORMATION
  Report Type: 
  Country: None (occurrence: None)
  Receive Date: 20080711
  Receipt Date: 20080627
  Transmission Date: 20090109
  Serious: Yes (Death)
  Sender: FDA-Public Use
  Company Number: 013699

PATIENT
  Age: 64 Year
  Sex: Female

DRUGS (3)
  1. PRIALT [Suspect]
     Indication: DRUG USE FOR UNKNOWN INDICATION
     Dosage: 0.341 UG, ONCE/HOUR, INTRATHECAL; 0.375 UG, ONCE/HOUR, INTRATHECAL
     Route: 037
     Dates: end: 20071001
  2. PRIALT [Suspect]
     Indication: DRUG USE FOR UNKNOWN INDICATION
     Dosage: 0.341 UG, ONCE/HOUR, INTRATHECAL; 0.375 UG, ONCE/HOUR, INTRATHECAL
     Route: 037
     Dates: start: 20071001, end: 20071129
  3. DILAUDID [Concomitant]

REACTIONS (3)
  - CARDIAC DEATH [None]
  - CARDIAC DISORDER [None]
  - LUNG DISORDER [None]
